FAERS Safety Report 26123443 (Version 1)
Quarter: 2025Q4

REPORT INFORMATION
  Report Type: Spontaneous
  Country: US (occurrence: US)
  Receive Date: 20251204
  Receipt Date: 20251204
  Transmission Date: 20260118
  Serious: Yes (Other)
  Sender: LEGACY PHARMACEUTICAL PACKAGING
  Company Number: US-LEGACY PHARMA INC. SEZC-LGP202511-000411

PATIENT

DRUGS (1)
  1. ESBRIET [Suspect]
     Active Substance: PIRFENIDONE
     Indication: Idiopathic pulmonary fibrosis
     Dosage: 267 MILLIGRAM, TID
     Route: 048

REACTIONS (8)
  - Fall [Unknown]
  - Loss of consciousness [Unknown]
  - Tenderness [Unknown]
  - Injury [Unknown]
  - Sternotomy [Unknown]
  - Skin laceration [Unknown]
  - Skin abrasion [Unknown]
  - Musculoskeletal chest pain [Unknown]
